FAERS Safety Report 7221169-X (Version None)
Quarter: 2011Q1

REPORT INFORMATION
  Report Type: 
  Country: None (occurrence: None)
  Receive Date: 20110112
  Receipt Date: 20110106
  Transmission Date: 20110831
  Serious: Yes (Death)
  Sender: FDA-Public Use
  Company Number: CH-CELGENEUS-151-21880-10112838

PATIENT
  Sex: Male

DRUGS (19)
  1. REVLIMID [Suspect]
     Indication: MULTIPLE MYELOMA
     Route: 048
     Dates: start: 20100301
  2. DEXAMETHASONE [Concomitant]
     Route: 065
     Dates: start: 20100701
  3. BORTEZOMIB [Concomitant]
     Indication: MULTIPLE MYELOMA
     Route: 065
     Dates: start: 20100701
  4. CISPLATIN [Concomitant]
     Route: 065
     Dates: start: 20100901
  5. DOXORUBICIN HCL [Concomitant]
     Indication: MULTIPLE MYELOMA
     Route: 065
     Dates: start: 20100701
  6. CYCLOPHOSPHAMIDE [Concomitant]
     Route: 065
     Dates: start: 20100901
  7. REVLIMID [Suspect]
     Route: 048
     Dates: start: 20100501
  8. DEXAMETHASONE [Concomitant]
     Route: 065
     Dates: start: 20100901
  9. CYCLOPHOSPHAMIDE [Concomitant]
     Indication: MULTIPLE MYELOMA
     Route: 065
     Dates: start: 20100701
  10. ETOPOSIDE [Concomitant]
     Route: 065
     Dates: start: 20100901
  11. PEGYLATED LIPOSOMAL DOXORUBICIN [Concomitant]
     Indication: MULTIPLE MYELOMA
     Route: 065
     Dates: start: 20100501
  12. BORTEZOMIB [Concomitant]
     Route: 065
     Dates: start: 20100901
  13. DOXORUBICIN HCL [Concomitant]
     Route: 065
     Dates: start: 20100901
  14. ETOPOSIDE [Concomitant]
     Indication: MULTIPLE MYELOMA
     Route: 065
     Dates: start: 20100701
  15. DEXAMETHASONE [Concomitant]
     Indication: MULTIPLE MYELOMA
     Dosage: LOW DOSE
     Route: 065
     Dates: start: 20100301
  16. CISPLATIN [Concomitant]
     Indication: MULTIPLE MYELOMA
     Route: 065
     Dates: start: 20100701
  17. REVLIMID [Suspect]
     Route: 048
     Dates: start: 20100701
  18. REVLIMID [Suspect]
     Route: 048
     Dates: start: 20100901
  19. DEXAMETHASONE [Concomitant]
     Dosage: LOW DOSE
     Route: 065
     Dates: start: 20100501

REACTIONS (2)
  - MULTIPLE MYELOMA [None]
  - DEATH [None]
